FAERS Safety Report 23440876 (Version 4)
Quarter: 2024Q1

REPORT INFORMATION
  Report Type: Spontaneous
  Country: US (occurrence: US)
  Receive Date: 20240125
  Receipt Date: 20240325
  Transmission Date: 20240409
  Serious: No
  Sender: FDA-Public Use
  Company Number: US-BIOVITRUM-2024-US-001267

PATIENT
  Age: 11 Month
  Sex: Female

DRUGS (5)
  1. SYNAGIS [Suspect]
     Active Substance: PALIVIZUMAB
     Indication: Premature baby
     Dosage: EVERY 28 DAYS (100MG/1ML VIAL)
     Route: 030
     Dates: start: 202401
  2. SYNAGIS [Suspect]
     Active Substance: PALIVIZUMAB
     Dosage: EVERY 28 DAYS (50MG/0.5ML)
     Route: 030
     Dates: start: 202401
  3. VITAMINS [Concomitant]
     Active Substance: VITAMINS
     Indication: Product used for unknown indication
  4. ZYRTEC [Concomitant]
     Active Substance: CETIRIZINE HYDROCHLORIDE
     Indication: Product used for unknown indication
  5. MULTIPLE VITAMINS/FLUORID [Concomitant]
     Indication: Product used for unknown indication

REACTIONS (2)
  - Viral infection [Recovered/Resolved]
  - Cough [Recovered/Resolved]
